FAERS Safety Report 6767829-6 (Version None)
Quarter: 2010Q2

REPORT INFORMATION
  Report Type: 
  Country: None (occurrence: None)
  Receive Date: 20100614
  Receipt Date: 20100603
  Transmission Date: 20101027
  Serious: Yes (Other)
  Sender: FDA-Public Use
  Company Number: CA-JNJFOC-20100601700

PATIENT
  Sex: Female
  Weight: 94.1 kg

DRUGS (3)
  1. REMICADE [Suspect]
     Indication: RHEUMATOID ARTHRITIS
     Route: 042
  2. LOVAZA [Concomitant]
     Dosage: 6 SUPPLEMENTS DAILY
  3. VITAMIN D [Concomitant]
     Dosage: DAILY

REACTIONS (5)
  - ASTHENIA [None]
  - CLUMSINESS [None]
  - COORDINATION ABNORMAL [None]
  - LOSS OF CONTROL OF LEGS [None]
  - URINARY INCONTINENCE [None]
